FAERS Safety Report 7565274-7 (Version None)
Quarter: 2011Q2

REPORT INFORMATION
  Report Type: 
  Country: None (occurrence: None)
  Receive Date: 20110622
  Receipt Date: 20110607
  Transmission Date: 20111010
  Serious: Yes (Death, Other)
  Sender: FDA-Public Use
  Company Number: GB-PFIZER INC-2011114128

PATIENT
  Sex: Male

DRUGS (4)
  1. VALPROATE SODIUM [Suspect]
     Indication: EPILEPSY
  2. TOPIRAMATE [Suspect]
     Indication: EPILEPSY
     Route: 048
  3. PHENYTOIN [Suspect]
     Indication: EPILEPSY
  4. LAMOTRGINE [Suspect]
     Indication: EPILEPSY

REACTIONS (2)
  - SEPSIS [None]
  - RENAL FAILURE [None]
